FAERS Safety Report 19362350 (Version 2)
Quarter: 2021Q2

REPORT INFORMATION
  Report Type: Spontaneous
  Country: CA (occurrence: CA)
  Receive Date: 20210603
  Receipt Date: 20210629
  Transmission Date: 20210717
  Serious: Yes (Hospitalization, Other)
  Sender: FDA-Public Use
  Company Number: CA-CELLTRION INC.-2021CA005797

PATIENT

DRUGS (2)
  1. PREDNISONE. [Concomitant]
     Active Substance: PREDNISONE
     Dosage: 20 MG, 1X/DAY TAPERING DOSE
  2. INFLECTRA [Suspect]
     Active Substance: INFLIXIMAB-DYYB
     Indication: COLITIS ULCERATIVE
     Dosage: 400 MG INDUCTION DOSES AT WEEK 0, 2 AND 6, THEN EVERY 8 WEEKS
     Route: 042
     Dates: start: 20201201, end: 20210310

REACTIONS (10)
  - Myalgia [Unknown]
  - Dehydration [Unknown]
  - Malaise [Unknown]
  - C-reactive protein increased [Unknown]
  - Drug specific antibody present [Unknown]
  - Colitis ulcerative [Not Recovered/Not Resolved]
  - Oropharyngeal pain [Unknown]
  - Odynophagia [Unknown]
  - Gastrooesophageal reflux disease [Unknown]
  - Arthralgia [Unknown]

NARRATIVE: CASE EVENT DATE: 202103
